FAERS Safety Report 4282145-2 (Version None)
Quarter: 2004Q1

REPORT INFORMATION
  Report Type: 
  Country: None (occurrence: None)
  Receive Date: 20040107
  Receipt Date: 20031001
  Transmission Date: 20041129
  Serious: Yes (Life-Threatening, Hospitalization)
  Sender: FDA-Public Use
  Company Number: 231304

PATIENT
  Age: 74 Year
  Sex: Male
  Weight: 86.2 kg

DRUGS (4)
  1. NOVOLOG [Suspect]
     Indication: INSULIN-REQUIRING TYPE II DIABETES MELLITUS
     Dosage: 3 IU, QD, SUBCUTANEOUS
     Route: 058
     Dates: start: 20030401, end: 20030624
  2. METFORMIN HCL [Concomitant]
  3. AVANDIA [Concomitant]
  4. AMARYL [Concomitant]

REACTIONS (1)
  - HYPOGLYCAEMIC COMA [None]
